FAERS Safety Report 8262037-4 (Version None)
Quarter: 2012Q2

REPORT INFORMATION
  Report Type: 
  Country: None (occurrence: None)
  Receive Date: 20120402
  Receipt Date: 20120315
  Transmission Date: 20120825
  Serious: Yes (Other)
  Sender: FDA-Public Use
  Company Number: 7119733

PATIENT
  Age: 36 Year
  Sex: Female

DRUGS (1)
  1. LEVOTHYROXINE SODIUM [Suspect]
     Dosage: 0.5 MCG (0.5 MCG, 1 IN 1 D)

REACTIONS (4)
  - PITUITARY ENLARGEMENT [None]
  - HYPOTHYROIDISM [None]
  - GOITRE [None]
  - HEADACHE [None]
